FAERS Safety Report 8664950 (Version 3)
Quarter: 2012Q4

REPORT INFORMATION
  Report Type: 
  Country: US (occurrence: US)
  Receive Date: 20120714
  Receipt Date: 20120926
  Transmission Date: 20130627
  Serious: No
  Sender: FDA-Public Use
  Company Number: US-009507513-1207USA002092

PATIENT
  Age: 71 Year
  Sex: Male
  Weight: 96.15 kg

DRUGS (1)
  1. ASMANEX TWISTHALER [Suspect]
     Dosage: 440 Microgram, qd
     Route: 055

REACTIONS (3)
  - Drug dose omission [Unknown]
  - Product quality issue [Unknown]
  - No adverse event [Unknown]
